FAERS Safety Report 13748940 (Version 1)
Quarter: 2017Q3

REPORT INFORMATION
  Report Type: Spontaneous
  Country: US (occurrence: US)
  Receive Date: 20170712
  Receipt Date: 20170712
  Transmission Date: 20171127
  Serious: Yes (Other)
  Sender: FDA-Public Use
  Company Number: None

PATIENT
  Age: 61 Year
  Sex: Female
  Weight: 69.4 kg

DRUGS (16)
  1. MULTIPLE VITAMIN [Concomitant]
     Active Substance: VITAMINS
  2. TACROLIMUS. [Concomitant]
     Active Substance: TACROLIMUS
  3. FOLIC ACID. [Concomitant]
     Active Substance: FOLIC ACID
  4. BACTRIM DS [Concomitant]
     Active Substance: SULFAMETHOXAZOLE\TRIMETHOPRIM
  5. LISINOPRIL. [Concomitant]
     Active Substance: LISINOPRIL
  6. PROCHLORPERAZINE. [Concomitant]
     Active Substance: PROCHLORPERAZINE
  7. DICYCLOMINE [Concomitant]
     Active Substance: DICYCLOMINE HYDROCHLORIDE
  8. SERTRALINE [Concomitant]
     Active Substance: SERTRALINE HYDROCHLORIDE
  9. VALACYCLOVIR [Concomitant]
     Active Substance: VALACYCLOVIR HYDROCHLORIDE
  10. AZACITIDINE. [Suspect]
     Active Substance: AZACITIDINE
     Indication: ACUTE MYELOID LEUKAEMIA
     Dosage: ?          OTHER DOSE:MG;OTHER FREQUENCY:DAY 1 TO DAY 5;?
     Route: 058
     Dates: start: 20170619, end: 20170623
  11. LEVOTHYROXINE. [Concomitant]
     Active Substance: LEVOTHYROXINE
  12. LOPERAMIDE [Concomitant]
     Active Substance: LOPERAMIDE
  13. PANTOPRAZOLE [Concomitant]
     Active Substance: PANTOPRAZOLE
  14. VALPORIC ACID [Suspect]
     Active Substance: VALPROIC ACID
     Indication: ACUTE MYELOID LEUKAEMIA
     Dosage: ?          OTHER DOSE:MG;?
     Route: 048
     Dates: start: 20170522, end: 20170710
  15. ONDANSETRON [Concomitant]
     Active Substance: ONDANSETRON
  16. POSACONAZOLE [Concomitant]
     Active Substance: POSACONAZOLE

REACTIONS (2)
  - Acute myeloid leukaemia [None]
  - Refractory cancer [None]

NARRATIVE: CASE EVENT DATE: 20170706
